FAERS Safety Report 14329755 (Version 2)
Quarter: 2017Q4

REPORT INFORMATION
  Report Type: Spontaneous
  Country: US (occurrence: US)
  Receive Date: 20171227
  Receipt Date: 20171228
  Transmission Date: 20180321
  Serious: Yes (Other)
  Sender: FDA-Public Use
  Company Number: US-PFIZER INC-2017544663

PATIENT
  Age: 60 Year
  Sex: Male
  Weight: 81.65 kg

DRUGS (17)
  1. GABAPENTIN. [Suspect]
     Active Substance: GABAPENTIN
     Indication: BALANCE DISORDER
  2. ALPHAGAN P [Concomitant]
     Active Substance: BRIMONIDINE TARTRATE
     Indication: GLAUCOMA
  3. LOSARTAN. [Concomitant]
     Active Substance: LOSARTAN
  4. LOVASTATIN. [Concomitant]
     Active Substance: LOVASTATIN
  5. INSULIN [Concomitant]
     Active Substance: INSULIN NOS
  6. CALCIUM [Concomitant]
     Active Substance: CALCIUM
  7. DUREZOL [Concomitant]
     Active Substance: DIFLUPREDNATE
     Indication: VISUAL FIELD DEFECT
  8. DUREZOL [Concomitant]
     Active Substance: DIFLUPREDNATE
     Indication: GLAUCOMA
  9. VITAMIN B12 [Concomitant]
     Active Substance: CYANOCOBALAMIN
  10. GINKGO BILOBA [Concomitant]
     Active Substance: GINKGO
  11. OMEPRAZOLE. [Concomitant]
     Active Substance: OMEPRAZOLE
     Indication: GASTROOESOPHAGEAL REFLUX DISEASE
  12. VITAMIN D [Concomitant]
     Active Substance: CHOLECALCIFEROL
     Dosage: 50,000 UNITS CAPS
  13. ALPHAGAN P [Concomitant]
     Active Substance: BRIMONIDINE TARTRATE
     Indication: VISUAL FIELD DEFECT
  14. LUMIGAN [Concomitant]
     Active Substance: BIMATOPROST
     Indication: VISUAL FIELD DEFECT
  15. LUMIGAN [Concomitant]
     Active Substance: BIMATOPROST
     Indication: GLAUCOMA
  16. GABAPENTIN. [Suspect]
     Active Substance: GABAPENTIN
     Indication: DIABETIC NEUROPATHY
     Dosage: ONE CAPSULE BY MOUTH ONCE A DAY
     Route: 048
     Dates: start: 201711, end: 201711
  17. ASPIRIN. [Concomitant]
     Active Substance: ASPIRIN
     Indication: ARTERIAL OCCLUSIVE DISEASE
     Dosage: TWO FULL STRENGTH PER DAY

REACTIONS (11)
  - Head injury [Recovered/Resolved]
  - Intentional product misuse [Unknown]
  - Neuropathy peripheral [Unknown]
  - Condition aggravated [Unknown]
  - Pain [Recovered/Resolved]
  - Drug ineffective for unapproved indication [Unknown]
  - Dizziness [Recovered/Resolved]
  - Cardiovascular disorder [Unknown]
  - Condition aggravated [Recovered/Resolved]
  - Fall [Recovered/Resolved]
  - Haemorrhage [Recovered/Resolved]

NARRATIVE: CASE EVENT DATE: 20171115
